FAERS Safety Report 16662057 (Version 2)
Quarter: 2020Q1

REPORT INFORMATION
  Report Type: Report from Study
  Country: US (occurrence: US)
  Receive Date: 20190802
  Receipt Date: 20200129
  Transmission Date: 20200409
  Serious: No
  Sender: FDA-Public Use
  Company Number: US-EXELIXIS-CABO-18017837

PATIENT
  Age: 52 Year
  Sex: Male

DRUGS (4)
  1. LEVOTHYROXINE. [Concomitant]
     Active Substance: LEVOTHYROXINE
  2. POTASSIUM [Concomitant]
     Active Substance: POTASSIUM
  3. CABOMETYX [Suspect]
     Active Substance: CABOZANTINIB S-MALATE
     Indication: RENAL CELL CARCINOMA
     Dosage: 60 MG, QD (IN MORNING WITHOUT FOOD)
     Route: 048
     Dates: start: 20181203
  4. LASIX [Concomitant]
     Active Substance: FUROSEMIDE

REACTIONS (10)
  - Pain of skin [Not Recovered/Not Resolved]
  - Insomnia [Unknown]
  - Taste disorder [Unknown]
  - Headache [Recovered/Resolved]
  - Night sweats [Recovered/Resolved]
  - Hypertension [Not Recovered/Not Resolved]
  - Fatigue [Recovered/Resolved]
  - Weight decreased [Unknown]
  - Tongue discomfort [Unknown]
  - Dermatitis acneiform [Not Recovered/Not Resolved]

NARRATIVE: CASE EVENT DATE: 201812
